FAERS Safety Report 7933708-1 (Version None)
Quarter: 2011Q4

REPORT INFORMATION
  Report Type: 
  Country: None (occurrence: None)
  Receive Date: 20111122
  Receipt Date: 20111115
  Transmission Date: 20120403
  Serious: Yes (Other)
  Sender: FDA-Public Use
  Company Number: PHHY2011DE100872

PATIENT
  Sex: Female

DRUGS (16)
  1. GABAPENTIN [Concomitant]
     Indication: BACK PAIN
     Dosage: 600 UNK, UNK
     Route: 048
     Dates: start: 20111001
  2. COPAXONE [Concomitant]
     Indication: MULTIPLE SCLEROSIS
     Dosage: UNK UKN, UNK
  3. METFORMIN HCL [Concomitant]
     Dosage: 850/D
     Dates: start: 20080201
  4. AZULFIDINE [Concomitant]
     Dosage: UNK UKN, UNK
     Dates: start: 19770101
  5. BIOTIN [Concomitant]
     Dosage: 5/D
     Dates: start: 20080101
  6. GILENYA [Suspect]
     Indication: MULTIPLE SCLEROSIS
     Dosage: 1 DF, QD
     Route: 048
     Dates: start: 20100920, end: 20111027
  7. REPAGLINIDE [Concomitant]
     Dosage: UNK UKN, UNK
     Dates: start: 20080201
  8. GABAPENTIN [Concomitant]
     Indication: PARAESTHESIA
     Dosage: 1500 MG, UNK
     Route: 048
     Dates: start: 20060425
  9. CHOLESTYRAMINE [Concomitant]
     Dosage: UNK UKN, UNK
     Dates: start: 20100101
  10. CELEBREX [Concomitant]
     Dosage: 200 UNK, UNK
     Dates: start: 20111001
  11. IBUPROFEN [Concomitant]
     Dosage: 600/D
     Dates: start: 20110309
  12. LOPERAMIDE HCL [Concomitant]
     Dosage: UNK UKN, UNK
     Dates: start: 20110309
  13. SULPIRIDE [Concomitant]
     Indication: DIZZINESS
     Dosage: 3X0.5
     Route: 048
     Dates: start: 20061207
  14. ARLEVERT [Concomitant]
     Indication: DIZZINESS
     Dosage: 2X1
     Route: 048
     Dates: start: 20110803
  15. CELEBREX [Concomitant]
     Indication: BACK PAIN
     Dosage: UNK UKN, UNK
     Dates: start: 20040923
  16. LISINOPRIL [Concomitant]
     Dosage: 10/D
     Dates: start: 20090601

REACTIONS (3)
  - DIARRHOEA [None]
  - NAUSEA [None]
  - ABDOMINAL PAIN [None]
